FAERS Safety Report 6553554-3 (Version None)
Quarter: 2010Q1

REPORT INFORMATION
  Report Type: 
  Country: None (occurrence: None)
  Receive Date: 20100127
  Receipt Date: 20100114
  Transmission Date: 20100710
  Serious: Yes (Hospitalization)
  Sender: FDA-Public Use
  Company Number: TW-ROCHE-681334

PATIENT
  Age: 27 Year
  Sex: Female

DRUGS (2)
  1. TRETINOIN [Suspect]
     Route: 065
  2. PREDNISOLONE [Concomitant]

REACTIONS (3)
  - PULMONARY HAEMORRHAGE [None]
  - RESPIRATORY FAILURE [None]
  - RETINOIC ACID SYNDROME [None]
